FAERS Safety Report 9900154 (Version 2)
Quarter: 2014Q1

REPORT INFORMATION
  Report Type: Report from Study
  Country: JP (occurrence: JP)
  Receive Date: 20140214
  Receipt Date: 20140214
  Transmission Date: 20141002
  Serious: Yes (Hospitalization, Other)
  Sender: FDA-Public Use
  Company Number: JP-TAKEDA-TCI2013A04981

PATIENT
  Age: 55 Year
  Sex: Male
  Weight: 69 kg

DRUGS (8)
  1. ALOGLIPTIN [Suspect]
     Indication: TYPE 2 DIABETES MELLITUS
     Dosage: 25 MG, QD
     Dates: start: 20120516
  2. VITANEURIN PO [Concomitant]
     Dosage: UNK
     Route: 048
  3. TENORMIN [Concomitant]
     Dosage: UNK
     Route: 048
  4. CONIEL [Concomitant]
     Dosage: UNK
     Route: 048
  5. LIPITOR [Concomitant]
     Dosage: UNK
     Route: 048
  6. URSO                               /00465701/ [Concomitant]
     Dosage: UNK
     Route: 048
  7. OLMETEC [Concomitant]
     Dosage: UNK
     Route: 048
  8. TATHION [Concomitant]
     Dosage: UNK
     Route: 048

REACTIONS (2)
  - Pancreatitis acute [Recovering/Resolving]
  - Gastrooesophageal reflux disease [Not Recovered/Not Resolved]
